FAERS Safety Report 17550327 (Version 1)
Quarter: 2020Q1

REPORT INFORMATION
  Report Type: Report from Study
  Country: None (occurrence: RO)
  Receive Date: 20200317
  Receipt Date: 20200317
  Transmission Date: 20200409
  Serious: Yes (Hospitalization)
  Sender: FDA-Public Use
  Company Number: RO-ABBVIE-20K-135-3322354-00

PATIENT
  Sex: Female

DRUGS (1)
  1. HUMIRA [Suspect]
     Active Substance: ADALIMUMAB
     Indication: CROHN^S DISEASE
     Route: 058
     Dates: start: 20181107, end: 20200219

REACTIONS (5)
  - Anaemia [Not Recovered/Not Resolved]
  - Purulence [Recovering/Resolving]
  - Mobility decreased [Recovering/Resolving]
  - Intestinal fistula [Recovering/Resolving]
  - Weight decreased [Not Recovered/Not Resolved]
